FAERS Safety Report 17276942 (Version 1)
Quarter: 2020Q1

REPORT INFORMATION
  Report Type: Spontaneous
  Country: US (occurrence: US)
  Receive Date: 20191226
  Receipt Date: 20191226
  Transmission Date: 20200409
  Serious: Yes (Hospitalization)
  Sender: FDA-Public Use
  Company Number: None

PATIENT
  Sex: Male
  Weight: 106 kg

DRUGS (1)
  1. OLANZAPINE. [Suspect]
     Active Substance: OLANZAPINE
     Dates: end: 20191212

REACTIONS (5)
  - Dehydration [None]
  - Weight decreased [None]
  - Nausea [None]
  - Leukopenia [None]
  - Acute kidney injury [None]

NARRATIVE: CASE EVENT DATE: 20191220
